FAERS Safety Report 8906476 (Version 1)
Quarter: 2012Q4

REPORT INFORMATION
  Report Type: Spontaneous
  Country: DK (occurrence: None)
  Receive Date: 20121107
  Receipt Date: 20121107
  Transmission Date: 20130627
  Serious: Yes (Life-Threatening, Disabling, Other)
  Sender: FDA-Public Use
  Company Number: 2012MA012926

PATIENT
  Age: 60 Year
  Sex: Female

DRUGS (3)
  1. EPIRUBICIN HYDROCHLORIDE [Suspect]
     Route: 040
     Dates: start: 20120614
  2. CYCLOPHOSPHAMIDE [Suspect]
     Indication: BREAST CANCER
     Route: 040
     Dates: start: 20120614
  3. FLUOROURACIL (FLUOROURACIL) [Suspect]
     Route: 040
     Dates: start: 20120614

REACTIONS (1)
  - Pulmonary fibrosis [None]
